FAERS Safety Report 8832084 (Version 1)
Quarter: 2012Q4

REPORT INFORMATION
  Report Type: 
  Country: US (occurrence: US)
  Receive Date: 20121009
  Receipt Date: 20121009
  Transmission Date: 20130627
  Serious: No
  Sender: FDA-Public Use
  Company Number: US-TEVA-363261USA

PATIENT
  Sex: Female
  Weight: 54.48 kg

DRUGS (3)
  1. AZILECT [Suspect]
     Indication: PARKINSON^S DISEASE
     Dosage: 1 Milligram Daily;
     Route: 048
     Dates: start: 201109
  2. LEVOTHYROXINE [Concomitant]
     Indication: HORMONE REPLACEMENT THERAPY
     Route: 048
  3. NAPROXEN [Concomitant]

REACTIONS (1)
  - Abdominal pain upper [Not Recovered/Not Resolved]
